FAERS Safety Report 12203497 (Version 8)
Quarter: 2016Q4

REPORT INFORMATION
  Report Type: Spontaneous
  Country: US (occurrence: US)
  Receive Date: 20160323
  Receipt Date: 20161221
  Transmission Date: 20170207
  Serious: Yes (Hospitalization, Congenital Anomaly, Other)
  Sender: FDA-Public Use
  Company Number: PHEH2016US006800

PATIENT
  Sex: Female

DRUGS (1)
  1. ZOFRAN [Suspect]
     Active Substance: ONDANSETRON HYDROCHLORIDE
     Indication: FOETAL EXPOSURE DURING PREGNANCY
     Dosage: MOTHER DOSE: 4 MG, ONCE PER DAY (QD)
     Route: 064

REACTIONS (34)
  - Heart disease congenital [Unknown]
  - Selective eating disorder [Unknown]
  - Foetal exposure during pregnancy [Unknown]
  - Microcytic anaemia [Unknown]
  - Congenital anomaly [Unknown]
  - Ventricular septal defect [Unknown]
  - Premature baby [Unknown]
  - Sensory processing disorder [Unknown]
  - Duodenitis [Unknown]
  - Congenital hydronephrosis [Unknown]
  - High arched palate [Unknown]
  - Congenital jaw malformation [Unknown]
  - Duane^s syndrome [Unknown]
  - Anhedonia [Unknown]
  - Pain [Unknown]
  - Low set ears [Unknown]
  - Low birth weight baby [Unknown]
  - Inflammatory bowel disease [Unknown]
  - Crohn^s disease [Unknown]
  - Injury [Unknown]
  - Left-to-right cardiac shunt [Unknown]
  - Clinodactyly [Unknown]
  - Neonatal respiratory distress syndrome [Unknown]
  - Stubbornness [Unknown]
  - Dysmorphism [Unknown]
  - Atrial septal defect [Unknown]
  - Congenital hearing disorder [Unknown]
  - Abnormal palmar/plantar creases [Unknown]
  - Cardiac murmur [Unknown]
  - Developmental delay [Unknown]
  - Emotional distress [Unknown]
  - Dysarthria [Unknown]
  - Balance disorder [Unknown]
  - Anxiety [Unknown]
